FAERS Safety Report 14033993 (Version 1)
Quarter: 2017Q4

REPORT INFORMATION
  Report Type: Spontaneous
  Country: US (occurrence: US)
  Receive Date: 20171003
  Receipt Date: 20171003
  Transmission Date: 20180321
  Serious: Yes (Other)
  Sender: FDA-Public Use
  Company Number: None

PATIENT
  Age: 67 Year
  Sex: Male
  Weight: 68.85 kg

DRUGS (9)
  1. TIMOLOL. [Concomitant]
     Active Substance: TIMOLOL
  2. PLAVIX [Concomitant]
     Active Substance: CLOPIDOGREL BISULFATE
  3. COQ10 [Concomitant]
     Active Substance: UBIDECARENONE
  4. METOPROLOL. [Concomitant]
     Active Substance: METOPROLOL
  5. ENALAPRIL [Concomitant]
     Active Substance: ENALAPRIL
  6. LATANOPROST. [Concomitant]
     Active Substance: LATANOPROST
  7. REPATHA [Suspect]
     Active Substance: EVOLOCUMAB
     Indication: BLOOD CHOLESTEROL INCREASED
     Dosage: ?          QUANTITY:1 INJECTION(S);OTHER FREQUENCY:EVERY TWO WEEKS;?
     Route: 058
     Dates: start: 20170727, end: 20170826
  8. MULTIVITAMIN [Concomitant]
     Active Substance: VITAMINS
  9. VITAMIN D3 [Concomitant]
     Active Substance: CHOLECALCIFEROL

REACTIONS (3)
  - Gastrointestinal pain [None]
  - Hepatic enzyme increased [None]
  - Gastrointestinal disorder [None]

NARRATIVE: CASE EVENT DATE: 20170825
